FAERS Safety Report 22634221 (Version 1)
Quarter: 2023Q2

REPORT INFORMATION
  Report Type: Spontaneous
  Country: JP (occurrence: None)
  Receive Date: 20230623
  Receipt Date: 20230623
  Transmission Date: 20230721
  Serious: Yes (Life-Threatening, Hospitalization)
  Sender: FDA-Public Use
  Company Number: 2023A143094

PATIENT
  Age: 80 Year
  Sex: Female

DRUGS (1)
  1. SYMBICORT [Suspect]
     Active Substance: BUDESONIDE\FORMOTEROL FUMARATE DIHYDRATE
     Indication: Asthma-chronic obstructive pulmonary disease overlap syndrome
     Dosage: DOSE UNKNOWN
     Route: 055

REACTIONS (5)
  - Respiratory failure [Unknown]
  - Asthma [Unknown]
  - Dyspnoea exertional [Unknown]
  - Wheezing [Unknown]
  - Insomnia [Unknown]
